FAERS Safety Report 11794435 (Version 1)
Quarter: 2015Q4

REPORT INFORMATION
  Report Type: Spontaneous
  Country: US (occurrence: US)
  Receive Date: 20151202
  Receipt Date: 20151202
  Transmission Date: 20160305
  Serious: No
  Sender: FDA-Public Use
  Company Number: US-ELI_LILLY_AND_COMPANY-US201511006689

PATIENT
  Sex: Female

DRUGS (1)
  1. FORTEO [Suspect]
     Active Substance: TERIPARATIDE
     Indication: OSTEOPOROSIS
     Dosage: UNK, QD
     Route: 065
     Dates: start: 201502

REACTIONS (13)
  - Muscular weakness [Unknown]
  - Pruritus [Unknown]
  - Rash [Unknown]
  - Injection site mass [Unknown]
  - Abdominal distension [Unknown]
  - Back pain [Unknown]
  - Muscle spasms [Unknown]
  - Dizziness [Unknown]
  - Arthralgia [Unknown]
  - Impaired healing [Unknown]
  - Dysphonia [Unknown]
  - Insomnia [Unknown]
  - Injection site swelling [Unknown]
